FAERS Safety Report 4330122-5 (Version None)
Quarter: 2004Q1

REPORT INFORMATION
  Report Type: 
  Country: None (occurrence: None)
  Receive Date: 20040329
  Receipt Date: 20040129
  Transmission Date: 20041129
  Serious: No
  Sender: FDA-Public Use
  Company Number: 04P-163-0248886-00

PATIENT
  Age: 74 Year
  Sex: Female
  Weight: 43.5453 kg

DRUGS (6)
  1. HUMIRA [Suspect]
     Indication: RHEUMATOID ARTHRITIS
     Dosage: 40 MG, 1 IN 2 WK, SUBCUTANEOUS; 40 MG 1 IN 1 WK
     Route: 058
     Dates: start: 20030801, end: 20031201
  2. HUMIRA [Suspect]
     Indication: RHEUMATOID ARTHRITIS
     Dosage: 40 MG, 1 IN 2 WK, SUBCUTANEOUS; 40 MG 1 IN 1 WK
     Route: 058
     Dates: start: 20031201
  3. ROFECOXIB [Concomitant]
  4. PAROXETINE HCL [Concomitant]
  5. TRAZODONE HCL [Concomitant]
  6. MULTIVITAMIN [Concomitant]

REACTIONS (3)
  - DRUG EFFECT DECREASED [None]
  - PRURITUS [None]
  - RASH SCALY [None]
